FAERS Safety Report 8457453-1 (Version None)
Quarter: 2012Q2

REPORT INFORMATION
  Report Type: 
  Country: None (occurrence: None)
  Receive Date: 20120621
  Receipt Date: 20120619
  Transmission Date: 20120825
  Serious: Yes (Disabling)
  Sender: FDA-Public Use
  Company Number: US-MERCK-1205USA05034

PATIENT
  Age: 73 Year
  Sex: Male

DRUGS (10)
  1. PROSCAR [Suspect]
     Indication: BENIGN PROSTATIC HYPERPLASIA
     Route: 048
     Dates: start: 20120522
  2. ALFUZOSIN HYDROCHLORIDE [Concomitant]
     Route: 065
  3. MIRAPEX [Concomitant]
     Route: 065
  4. COMTAN [Concomitant]
     Route: 065
  5. SELEGILINE [Concomitant]
     Route: 065
  6. CRESTOR [Concomitant]
     Route: 065
  7. SINEMET [Concomitant]
     Route: 048
  8. SEROQUEL [Concomitant]
     Route: 065
  9. SINEMET [Concomitant]
     Route: 048
  10. PAROXETINE [Concomitant]
     Route: 065

REACTIONS (3)
  - DIZZINESS [None]
  - WALKING AID USER [None]
  - ASTHENIA [None]
